FAERS Safety Report 19701678 (Version 1)
Quarter: 2021Q3

REPORT INFORMATION
  Report Type: Spontaneous
  Country: CA (occurrence: CA)
  Receive Date: 20210814
  Receipt Date: 20210814
  Transmission Date: 20211014
  Serious: Yes (Other)
  Sender: FDA-Public Use
  Company Number: CA-AMGEN-CANSP2021102010

PATIENT
  Sex: Male

DRUGS (2)
  1. AIMOVIG [Suspect]
     Active Substance: ERENUMAB-AOOE
     Dosage: UNK
     Route: 065
     Dates: start: 201912
  2. AIMOVIG [Suspect]
     Active Substance: ERENUMAB-AOOE
     Indication: PSORIASIS
     Dosage: 140 MILLIGRAM, QMO
     Route: 058
     Dates: start: 201911

REACTIONS (2)
  - Back pain [Recovering/Resolving]
  - Product use in unapproved indication [Unknown]

NARRATIVE: CASE EVENT DATE: 202101
